FAERS Safety Report 11736624 (Version 1)
Quarter: 2015Q4

REPORT INFORMATION
  Report Type: Spontaneous
  Country: US (occurrence: US)
  Receive Date: 20151110
  Receipt Date: 20151110
  Transmission Date: 20160304
  Serious: No
  Sender: FDA-Public Use
  Company Number: US-ELI_LILLY_AND_COMPANY-US201203005910

PATIENT
  Sex: Female

DRUGS (3)
  1. FORTEO [Suspect]
     Active Substance: TERIPARATIDE
     Indication: OSTEOPOROSIS
     Dosage: 20 UG, QD
     Dates: start: 20120302
  2. FORTEO [Suspect]
     Active Substance: TERIPARATIDE
     Dosage: 20 UG, QD
     Route: 065
     Dates: end: 20120528
  3. PREDNISON [Concomitant]
     Active Substance: PREDNISONE

REACTIONS (10)
  - Joint swelling [Unknown]
  - Hypoaesthesia [Unknown]
  - Arthralgia [Unknown]
  - Peripheral swelling [Unknown]
  - Vein disorder [Unknown]
  - Injection site bruising [Recovering/Resolving]
  - Contusion [Unknown]
  - Drug hypersensitivity [Unknown]
  - Tenderness [Unknown]
  - Pain in extremity [Not Recovered/Not Resolved]

NARRATIVE: CASE EVENT DATE: 2012
